FAERS Safety Report 15543809 (Version 5)
Quarter: 2019Q1

REPORT INFORMATION
  Report Type: Spontaneous
  Country: PT (occurrence: PT)
  Receive Date: 20181023
  Receipt Date: 20190220
  Transmission Date: 20190417
  Serious: Yes (Hospitalization, Other)
  Sender: FDA-Public Use
  Company Number: PHHY2018PT129721

PATIENT
  Age: 34 Year
  Sex: Male

DRUGS (4)
  1. DIAZEPAM. [Suspect]
     Active Substance: DIAZEPAM
     Indication: PRODUCT USED FOR UNKNOWN INDICATION
     Dosage: UNK
     Route: 065
  2. IBUPROFEN. [Suspect]
     Active Substance: IBUPROFEN
     Dosage: 4 MG, UNK
     Route: 065
  3. TRAMADOL. [Suspect]
     Active Substance: TRAMADOL
     Indication: PRODUCT USED FOR UNKNOWN INDICATION
     Dosage: 3 G, UNK
     Route: 065
  4. IBUPROFEN. [Suspect]
     Active Substance: IBUPROFEN
     Indication: PRODUCT USED FOR UNKNOWN INDICATION
     Dosage: 4 G, UNK
     Route: 065

REACTIONS (10)
  - Neurotoxicity [Unknown]
  - Blood creatine phosphokinase increased [Unknown]
  - Tachypnoea [Unknown]
  - Generalised tonic-clonic seizure [Recovered/Resolved]
  - Intentional overdose [Unknown]
  - Tracheobronchitis [Unknown]
  - Toxicity to various agents [Unknown]
  - Nystagmus [Unknown]
  - Sinus tachycardia [Unknown]
  - Epilepsy [Unknown]
